FAERS Safety Report 9657801 (Version 1)
Quarter: 2013Q4

REPORT INFORMATION
  Report Type: Spontaneous
  Country: US (occurrence: US)
  Receive Date: 20131030
  Receipt Date: 20131030
  Transmission Date: 20140711
  Serious: No
  Sender: FDA-Public Use
  Company Number: US-009507513-1310USA012556

PATIENT
  Age: 36 Year
  Sex: Male

DRUGS (7)
  1. SAPHRIS [Suspect]
     Dosage: 20 MG, UNK
     Route: 060
  2. TRAMADOL HYDROCHLORIDE [Concomitant]
  3. VIIBRYD [Concomitant]
  4. TESTOSTERONE UNDECANOATE [Concomitant]
     Route: 048
  5. HYDROXYZINE [Concomitant]
  6. TOPAMAX [Concomitant]
  7. MORPHINE [Concomitant]

REACTIONS (1)
  - Dystonia [Recovering/Resolving]
